FAERS Safety Report 24827356 (Version 4)
Quarter: 2025Q1

REPORT INFORMATION
  Report Type: Spontaneous
  Country: US (occurrence: US)
  Receive Date: 20250109
  Receipt Date: 20250314
  Transmission Date: 20250408
  Serious: Yes (Other)
  Sender: SANOFI AVENTIS
  Company Number: US-SA-2025SA006697

PATIENT
  Age: 46 Year
  Sex: Female

DRUGS (3)
  1. DUPIXENT [Suspect]
     Active Substance: DUPILUMAB
     Indication: Asthma
     Dates: start: 202411
  2. DUPIXENT [Suspect]
     Active Substance: DUPILUMAB
     Dosage: 300 MG, QOW
     Route: 058
     Dates: start: 202412
  3. KESIMPTA [Concomitant]
     Active Substance: OFATUMUMAB

REACTIONS (6)
  - Pneumonitis [Unknown]
  - Condition aggravated [Unknown]
  - Respiratory syncytial virus infection [Unknown]
  - Abdominal discomfort [Unknown]
  - Viral infection [Unknown]
  - Asthma [Unknown]
